FAERS Safety Report 6520396-4 (Version None)
Quarter: 2009Q4

REPORT INFORMATION
  Report Type: 
  Country: None (occurrence: None)
  Receive Date: 20091229
  Receipt Date: 20090617
  Transmission Date: 20100525
  Serious: Yes (Hospitalization, Other)
  Sender: FDA-Public Use
  Company Number: JP-JNJFOC-20090307237

PATIENT
  Age: 29 Year
  Sex: Female
  Weight: 60 kg

DRUGS (9)
  1. REMICADE [Suspect]
     Route: 042
  2. REMICADE [Suspect]
     Route: 042
  3. REMICADE [Suspect]
     Route: 042
  4. REMICADE [Suspect]
     Route: 042
  5. REMICADE [Suspect]
     Indication: CROHN'S DISEASE
     Route: 042
  6. PENTASA [Concomitant]
     Indication: CROHN'S DISEASE
     Dosage: DOSE ^12TAB^
     Route: 048
  7. STEROIDS [Concomitant]
     Indication: PROPHYLAXIS
  8. CHLOR-TRIMETON [Concomitant]
     Indication: PROPHYLAXIS
  9. DEXAMETHASONE [Concomitant]
     Indication: PROPHYLAXIS

REACTIONS (4)
  - CHILLS [None]
  - DYSPNOEA [None]
  - FLUSHING [None]
  - INFUSION RELATED REACTION [None]
